FAERS Safety Report 9460853 (Version 1)
Quarter: 2013Q3

REPORT INFORMATION
  Report Type: Spontaneous
  Country: US (occurrence: US)
  Receive Date: 20130816
  Receipt Date: 20130816
  Transmission Date: 20140515
  Serious: Yes (Hospitalization, Other)
  Sender: FDA-Public Use
  Company Number: US-AMGEN-USASP2013056916

PATIENT
  Age: 64 Year
  Sex: Female
  Weight: 89.8 kg

DRUGS (2)
  1. PROCRIT [Suspect]
     Indication: RED BLOOD CELL ABNORMALITY
     Dosage: UNK UNK, 3 TIMES/WK
     Route: 042
  2. PROCRIT [Suspect]
     Indication: FATIGUE

REACTIONS (8)
  - Vomiting [Recovered/Resolved]
  - Renal disorder [Unknown]
  - Blood pressure increased [Unknown]
  - Malaise [Recovered/Resolved]
  - Amnesia [Not Recovered/Not Resolved]
  - Breast mass [Not Recovered/Not Resolved]
  - Nodule [Not Recovered/Not Resolved]
  - Adverse event [Unknown]
